FAERS Safety Report 5974999-6 (Version None)
Quarter: 2008Q4

REPORT INFORMATION
  Report Type: 
  Country: None (occurrence: None)
  Receive Date: 20081128
  Receipt Date: 20081115
  Transmission Date: 20090506
  Serious: Yes (Other)
  Sender: FDA-Public Use
  Company Number: ENTC2008-0386

PATIENT
  Sex: Male

DRUGS (1)
  1. STALEVO 100 [Suspect]
     Dosage: 200/100/25 MG 5 TIMES PER DAY

REACTIONS (6)
  - HAEMATURIA [None]
  - POLLAKIURIA [None]
  - PYURIA [None]
  - RESPIRATORY DISORDER [None]
  - RESPIRATORY RATE INCREASED [None]
  - WHITE BLOOD CELLS URINE POSITIVE [None]
